FAERS Safety Report 8805875 (Version 1)
Quarter: 2012Q4

REPORT INFORMATION
  Report Type: Spontaneous
  Country: US (occurrence: None)
  Receive Date: 20120918
  Receipt Date: 20120918
  Transmission Date: 20130627
  Serious: Yes (Other)
  Sender: FDA-Public Use
  Company Number: 2012SA065051

PATIENT
  Age: 70 Year
  Sex: Female

DRUGS (1)
  1. CAPZASIN HP CREME [Suspect]
     Dosage: TOPICAL
     Route: 061
     Dates: start: 20120602, end: 20120602

REACTIONS (2)
  - Burning sensation [None]
  - Blister [None]
